FAERS Safety Report 23876998 (Version 3)
Quarter: 2024Q3

REPORT INFORMATION
  Report Type: Report from Study
  Country: DE (occurrence: DE)
  Receive Date: 20240521
  Receipt Date: 20240814
  Transmission Date: 20241017
  Serious: Yes (Hospitalization)
  Sender: NOVARTIS
  Company Number: DE-002147023-NVSC2024DE104682

PATIENT
  Sex: Female
  Weight: 54 kg

DRUGS (1)
  1. COSENTYX [Suspect]
     Active Substance: SECUKINUMAB
     Indication: Psoriasis
     Dosage: 300 MG
     Route: 058
     Dates: start: 20191125, end: 20230828

REACTIONS (2)
  - Pulmonary granuloma [Unknown]
  - Procedural pneumothorax [Unknown]

NARRATIVE: CASE EVENT DATE: 20230501
